FAERS Safety Report 25737202 (Version 1)
Quarter: 2025Q3

REPORT INFORMATION
  Report Type: Report from Study
  Country: EU (occurrence: EU)
  Receive Date: 20250828
  Receipt Date: 20250828
  Transmission Date: 20251020
  Serious: Yes (Other)
  Sender: MYLAN
  Company Number: EU-JAZZ PHARMACEUTICALS-2025-FR-017251

PATIENT
  Age: 69 Year
  Sex: Male
  Weight: 65 kg

DRUGS (16)
  1. PANTOPRAZOLE [Suspect]
     Active Substance: PANTOPRAZOLE
     Indication: Product used for unknown indication
     Dosage: QD (1/DAY)
  2. PANTOPRAZOLE [Suspect]
     Active Substance: PANTOPRAZOLE
     Dosage: QD (1/DAY)
     Route: 048
  3. PANTOPRAZOLE [Suspect]
     Active Substance: PANTOPRAZOLE
     Dosage: QD (1/DAY)
     Route: 048
  4. PANTOPRAZOLE [Suspect]
     Active Substance: PANTOPRAZOLE
     Dosage: QD (1/DAY)
  5. ZANIDATAMAB [Suspect]
     Active Substance: ZANIDATAMAB
     Indication: HER2 positive biliary tract cancer
     Dosage: 20 MILLIGRAM/KILOGRAM, Q2W (DOSAGE1)
     Dates: start: 20250509, end: 20250620
  6. ZANIDATAMAB [Suspect]
     Active Substance: ZANIDATAMAB
     Indication: Bile duct cancer stage IV
     Dosage: 20 MILLIGRAM/KILOGRAM, Q2W (DOSAGE1)
     Route: 042
     Dates: start: 20250509, end: 20250620
  7. ZANIDATAMAB [Suspect]
     Active Substance: ZANIDATAMAB
     Dosage: 20 MILLIGRAM/KILOGRAM, Q2W (DOSAGE1)
     Route: 042
     Dates: start: 20250509, end: 20250620
  8. ZANIDATAMAB [Suspect]
     Active Substance: ZANIDATAMAB
     Dosage: 20 MILLIGRAM/KILOGRAM, Q2W (DOSAGE1)
     Dates: start: 20250509, end: 20250620
  9. ELIQUIS [Suspect]
     Active Substance: APIXABAN
     Indication: Product used for unknown indication
     Dosage: BID (12 HOURS)
  10. ELIQUIS [Suspect]
     Active Substance: APIXABAN
     Dosage: BID (12 HOURS)
     Route: 048
  11. ELIQUIS [Suspect]
     Active Substance: APIXABAN
     Dosage: BID (12 HOURS)
     Route: 048
  12. ELIQUIS [Suspect]
     Active Substance: APIXABAN
     Dosage: BID (12 HOURS)
  13. ERYTHROPOIETIN [Suspect]
     Active Substance: ERYTHROPOIETIN
     Indication: Product used for unknown indication
     Dosage: UNK UNK, QW (1 PER WEEK)
  14. ERYTHROPOIETIN [Suspect]
     Active Substance: ERYTHROPOIETIN
     Dosage: UNK UNK, QW (1 PER WEEK)
     Route: 058
  15. ERYTHROPOIETIN [Suspect]
     Active Substance: ERYTHROPOIETIN
     Dosage: UNK UNK, QW (1 PER WEEK)
     Route: 058
  16. ERYTHROPOIETIN [Suspect]
     Active Substance: ERYTHROPOIETIN
     Dosage: UNK UNK, QW (1 PER WEEK)

REACTIONS (1)
  - Bile duct cancer stage IV [Unknown]

NARRATIVE: CASE EVENT DATE: 20250509
